FAERS Safety Report 5385263-0 (Version None)
Quarter: 2007Q3

REPORT INFORMATION
  Report Type: 
  Country: None (occurrence: None)
  Receive Date: 20070712
  Receipt Date: 20070702
  Transmission Date: 20080115
  Serious: Yes (Hospitalization, Other)
  Sender: FDA-Public Use
  Company Number: SE-AMGEN-UK232162

PATIENT
  Sex: Female
  Weight: 60 kg

DRUGS (7)
  1. ARANESP [Suspect]
     Indication: RENAL FAILURE CHRONIC
     Route: 065
     Dates: start: 20061113, end: 20070215
  2. ADALAT [Concomitant]
     Route: 048
     Dates: end: 20070202
  3. CILAZAPRIL [Concomitant]
     Dates: start: 20050101
  4. PROGRAF [Concomitant]
  5. METOPROLOL TARTRATE [Concomitant]
     Dates: start: 20070202, end: 20070215
  6. INDERAL [Concomitant]
     Dates: start: 20070215
  7. PLENDIL [Concomitant]

REACTIONS (6)
  - BLOOD PRESSURE INCREASED [None]
  - DIARRHOEA [None]
  - DYSPNOEA [None]
  - HEADACHE [None]
  - RENAL ARTERY STENOSIS [None]
  - VOMITING [None]
